FAERS Safety Report 7580359-7 (Version None)
Quarter: 2011Q2

REPORT INFORMATION
  Report Type: 
  Country: None (occurrence: None)
  Receive Date: 20110629
  Receipt Date: 20110616
  Transmission Date: 20111010
  Serious: Yes (Other)
  Sender: FDA-Public Use
  Company Number: AU-JNJFOC-20110610003

PATIENT
  Sex: Female

DRUGS (3)
  1. REMICADE [Suspect]
     Indication: CROHN'S DISEASE
     Route: 042
     Dates: start: 20091119
  2. PENTASA [Concomitant]
     Route: 065
  3. IMURAN [Concomitant]
     Route: 065

REACTIONS (2)
  - ILEOSTOMY [None]
  - PAIN [None]
